FAERS Safety Report 9032191 (Version 3)
Quarter: 2013Q1

REPORT INFORMATION
  Report Type: Spontaneous
  Country: IT (occurrence: IT)
  Receive Date: 20130122
  Receipt Date: 20130219
  Transmission Date: 20140127
  Serious: Yes (Other)
  Sender: FDA-Public Use
  Company Number: IT-PFIZER INC-2013025635

PATIENT
  Age: 67 Year
  Sex: Male

DRUGS (14)
  1. ADRIBLASTINA [Suspect]
     Indication: HODGKIN^S DISEASE
     Dosage: 45 MG, CYCLIC
     Route: 042
     Dates: start: 20120319
  2. BLEOMYCIN SULFATE [Suspect]
     Indication: HODGKIN^S DISEASE
     Dosage: 19 MG, CYCLIC
     Route: 042
     Dates: start: 20120319
  3. VINBLASTINE [Suspect]
     Indication: HODGKIN^S DISEASE
     Dosage: 5 MG, CYCLIC
     Route: 042
     Dates: start: 20120319
  4. DETICENE [Suspect]
     Indication: HODGKIN^S DISEASE
     Dosage: 700 MG, CYCLIC
     Route: 042
     Dates: start: 20120319
  5. ALLOPURINOL [Concomitant]
     Dosage: 1 DF, UNK
  6. ATENOLOL [Concomitant]
     Dosage: 50 MG, UNK
     Route: 048
  7. DOXAZOSIN [Concomitant]
     Dosage: 4 MG, UNK
     Route: 048
  8. SIVASTIN [Concomitant]
     Dosage: 1 DF, UNK
  9. ESKIM [Concomitant]
     Dosage: 2000 MG, UNK
     Route: 048
  10. PANTORC [Concomitant]
     Dosage: 1 DF, UNK
     Route: 048
  11. CARDIOASPIRIN [Concomitant]
  12. LAEVOLAC ^LAEVOSAN^ [Concomitant]
     Route: 048
  13. ADALAT CRONO [Concomitant]
     Dosage: 1 DF, UNK
  14. EFFIENT [Concomitant]

REACTIONS (1)
  - Interstitial lung disease [Unknown]
